FAERS Safety Report 6454023-1 (Version None)
Quarter: 2009Q4

REPORT INFORMATION
  Report Type: 
  Country: None (occurrence: None)
  Receive Date: 20091124
  Receipt Date: 20091116
  Transmission Date: 20100525
  Serious: Yes (Other)
  Sender: FDA-Public Use
  Company Number: A0812401A

PATIENT
  Age: 60 Year
  Sex: Male
  Weight: 92.7 kg

DRUGS (2)
  1. FLOVENT [Suspect]
     Dosage: 4PUFF TWICE PER DAY
     Route: 048
     Dates: start: 20090929, end: 20090929
  2. PRILOSEC [Concomitant]
     Dosage: 20MG PER DAY

REACTIONS (13)
  - BRONCHITIS [None]
  - CAUSTIC INJURY [None]
  - CHEST DISCOMFORT [None]
  - CHEST PAIN [None]
  - CHEST X-RAY ABNORMAL [None]
  - DYSPNOEA [None]
  - GASTROOESOPHAGEAL REFLUX DISEASE [None]
  - MYOCARDIAL INFARCTION [None]
  - NONSPECIFIC REACTION [None]
  - PRODUCTIVE COUGH [None]
  - SINUS DISORDER [None]
  - SINUSITIS [None]
  - UPPER RESPIRATORY TRACT INFECTION [None]
